FAERS Safety Report 6807409-7 (Version None)
Quarter: 2010Q2

REPORT INFORMATION
  Report Type: 
  Country: None (occurrence: None)
  Receive Date: 20100629
  Receipt Date: 20081023
  Transmission Date: 20101027
  Serious: No
  Sender: FDA-Public Use
  Company Number: US-PFIZER INC-2008074713

PATIENT
  Sex: Male
  Weight: 78.6 kg

DRUGS (5)
  1. VIAGRA [Suspect]
     Indication: ERECTILE DYSFUNCTION
  2. CARDIOVASCULAR SYSTEM DRUGS [Concomitant]
     Indication: BLOOD PRESSURE ABNORMAL
  3. HERBAL NOS/MINERALS NOS [Concomitant]
  4. DRUG USED IN DIABETES [Concomitant]
     Indication: DIABETES MELLITUS
  5. CHOLESTEROL [Concomitant]
     Indication: BLOOD CHOLESTEROL ABNORMAL

REACTIONS (1)
  - DRUG INEFFECTIVE [None]
